FAERS Safety Report 5073492-5 (Version None)
Quarter: 2006Q3

REPORT INFORMATION
  Report Type: 
  Country: None (occurrence: None)
  Receive Date: 20060803
  Receipt Date: 20060718
  Transmission Date: 20061208
  Serious: Yes (Death)
  Sender: FDA-Public Use
  Company Number: IE-2006-019289

PATIENT
  Age: 69 Year
  Sex: Male

DRUGS (1)
  1. CAMPATH [Suspect]

REACTIONS (1)
  - DEATH [None]
